FAERS Safety Report 5101910-2 (Version None)
Quarter: 2006Q3

REPORT INFORMATION
  Report Type: 
  Country: None (occurrence: None)
  Receive Date: 20060907
  Receipt Date: 20060825
  Transmission Date: 20061208
  Serious: Yes (Death, Hospitalization)
  Sender: FDA-Public Use
  Company Number: AZAUS200600280

PATIENT
  Age: 41 Year
  Sex: Male
  Weight: 56 kg

DRUGS (5)
  1. AZACITIDINE (AZACITIDINE) (INJECTION) [Suspect]
     Indication: NASOPHARYNGEAL CANCER
     Dosage: 50 MG/M2/DAY FOR CYCLE 1 THEN 37.5 MG/M2/DAY THEREAFTER (DAYS 1-11 [SKIPPING SUNDAYS]), SUBCUTANEOUS
     Route: 058
     Dates: start: 20060515, end: 20060630
  2. VORINOSTAT [Suspect]
     Indication: NASOPHARYNGEAL CANCER
     Dosage: 400 MG (200 MG, TWICE DAILY, DAYS 1-14), ORAL
     Route: 048
     Dates: start: 20060515, end: 20060703
  3. CODEINE PHOSPHATE (CODEINE PHOSPHATE) [Concomitant]
  4. INDOMETHACIN [Concomitant]
  5. OMEPRAZOLE [Concomitant]

REACTIONS (18)
  - ANAEMIA [None]
  - BLOOD ALBUMIN DECREASED [None]
  - BUDD-CHIARI SYNDROME [None]
  - DRUG INEFFECTIVE [None]
  - EPISTAXIS [None]
  - HEPATIC CONGESTION [None]
  - HEPATIC FAILURE [None]
  - HEPATOMEGALY [None]
  - LIVER DISORDER [None]
  - LUNG INFECTION [None]
  - PULMONARY EMBOLISM [None]
  - PULMONARY INFARCTION [None]
  - RESPIRATORY FAILURE [None]
  - SINUS TACHYCARDIA [None]
  - TACHYPNOEA [None]
  - THROMBOCYTOPENIA [None]
  - VENOOCCLUSIVE LIVER DISEASE [None]
  - VENOUS PRESSURE JUGULAR INCREASED [None]
